FAERS Safety Report 18215317 (Version 1)
Quarter: 2020Q3

REPORT INFORMATION
  Report Type: Spontaneous
  Country: US (occurrence: US)
  Receive Date: 20200831
  Receipt Date: 20200831
  Transmission Date: 20201103
  Serious: No
  Sender: FDA-Public Use
  Company Number: US-ENDO PHARMACEUTICALS INC-2020-002168

PATIENT
  Age: 25 Year
  Sex: Female

DRUGS (2)
  1. BREVITAL SODIUM [Suspect]
     Active Substance: METHOHEXITAL SODIUM
     Indication: INDUCTION OF ANAESTHESIA
     Dosage: 100 MG, SINGLE
     Route: 065
     Dates: start: 20200207, end: 20200207
  2. BREVITAL SODIUM [Suspect]
     Active Substance: METHOHEXITAL SODIUM
     Dosage: 2 SINGLE DOSES OF 80 MG EACH GIVEN ON SAME DAY (MORNING AND LATER IN THE DAY)
     Route: 065
     Dates: start: 20200221, end: 20200221

REACTIONS (2)
  - Drug ineffective [Unknown]
  - Unwanted awareness during anaesthesia [Recovered/Resolved]

NARRATIVE: CASE EVENT DATE: 20200207
